FAERS Safety Report 8084815-7 (Version None)
Quarter: 2012Q1

REPORT INFORMATION
  Report Type: 
  Country: None (occurrence: None)
  Receive Date: 20120128
  Receipt Date: 20110317
  Transmission Date: 20120608
  Serious: No
  Sender: FDA-Public Use
  Company Number: US-ABBOTT-11P-163-0713567-00

PATIENT
  Age: 41 Year
  Sex: Female

DRUGS (10)
  1. LEXAPRO [Concomitant]
     Indication: PRODUCT USED FOR UNKNOWN INDICATION
  2. ARMODAFINIL [Concomitant]
     Indication: FUNGAL INFECTION
     Dosage: AS NEEDED
  3. VITAMIN B-12 [Concomitant]
     Indication: PRODUCT USED FOR UNKNOWN INDICATION
  4. ASPIRIN [Concomitant]
     Indication: PRODUCT USED FOR UNKNOWN INDICATION
  5. LAMICTAL [Concomitant]
     Indication: PRODUCT USED FOR UNKNOWN INDICATION
  6. HUMIRA [Suspect]
     Indication: CROHN'S DISEASE
     Dates: start: 20101001
  7. PHENERGAN [Concomitant]
     Indication: NAUSEA
     Dosage: AS NEEDED
  8. ASACOL [Concomitant]
     Indication: PRODUCT USED FOR UNKNOWN INDICATION
  9. DOMPERIDONE [Concomitant]
     Indication: NAUSEA
     Dosage: AS NEEDED
  10. NEXIUM [Concomitant]
     Indication: PRODUCT USED FOR UNKNOWN INDICATION

REACTIONS (10)
  - MOBILITY DECREASED [None]
  - CHEST PAIN [None]
  - DYSPNOEA [None]
  - URTICARIA [None]
  - RENAL DISORDER [None]
  - RASH [None]
  - SWELLING [None]
  - PYREXIA [None]
  - PHARYNGITIS STREPTOCOCCAL [None]
  - FUNGAL INFECTION [None]
